FAERS Safety Report 8026856-1 (Version None)
Quarter: 2012Q1

REPORT INFORMATION
  Report Type: 
  Country: None (occurrence: None)
  Receive Date: 20120106
  Receipt Date: 20120103
  Transmission Date: 20120608
  Serious: No
  Sender: FDA-Public Use
  Company Number: US-PFIZER INC-2012001554

PATIENT
  Sex: Female
  Weight: 36.281 kg

DRUGS (6)
  1. ADVAIR DISKUS 100/50 [Concomitant]
     Dosage: UNK
     Route: 055
  2. ACETAMINOPHEN [Concomitant]
     Dosage: TWO TABLETS DAILY
  3. NICOTROL [Suspect]
     Indication: SMOKING CESSATION THERAPY
     Dosage: UNK
     Route: 055
     Dates: start: 20111201
  4. SPIRIVA [Concomitant]
     Dosage: UNK
     Route: 055
  5. SIMVASTATIN [Concomitant]
     Indication: HYPERTENSION
     Dosage: UNK
  6. CRESTOR [Concomitant]
     Indication: BLOOD CHOLESTEROL INCREASED
     Dosage: UNK

REACTIONS (1)
  - DRUG INEFFECTIVE [None]
